FAERS Safety Report 21900413 (Version 1)
Quarter: 2023Q1

REPORT INFORMATION
  Report Type: Spontaneous
  Country: US (occurrence: US)
  Receive Date: 20230123
  Receipt Date: 20230123
  Transmission Date: 20230417
  Serious: No
  Sender: FDA-Public Use
  Company Number: US-MYLANLABS-2023M1003752

PATIENT

DRUGS (1)
  1. LEVOTHYROXINE [Suspect]
     Active Substance: LEVOTHYROXINE
     Indication: Thyroid disorder
     Dosage: 112 MICROGRAM
     Route: 065

REACTIONS (3)
  - Goitre [Unknown]
  - Weight increased [Unknown]
  - Alopecia [Unknown]
